FAERS Safety Report 8451975-5 (Version None)
Quarter: 2012Q2

REPORT INFORMATION
  Report Type: 
  Country: None (occurrence: None)
  Receive Date: 20120620
  Receipt Date: 20120327
  Transmission Date: 20120825
  Serious: No
  Sender: FDA-Public Use
  Company Number: US-VERTEX PHARMACEUTICALS INC.-AE-2012-004446

PATIENT
  Sex: Female
  Weight: 74.002 kg

DRUGS (7)
  1. ZOLOFT [Concomitant]
     Indication: ANXIETY
  2. RIBAVIRIN [Concomitant]
     Indication: HEPATITIS C
     Route: 048
     Dates: start: 20120312
  3. CLONADINE [Concomitant]
     Indication: HYPERTENSION
     Route: 048
  4. ZOLOFT [Concomitant]
     Indication: DEPRESSION
  5. PEGASYS [Concomitant]
     Indication: HEPATITIS C
     Dates: start: 20120312
  6. LISINOPRIL [Concomitant]
     Indication: HYPERTENSION
     Route: 048
  7. INCIVEK [Suspect]
     Indication: HEPATITIS C
     Route: 048
     Dates: start: 20120312

REACTIONS (4)
  - RASH PRURITIC [None]
  - FATIGUE [None]
  - HYPOAESTHESIA [None]
  - BLOOD PRESSURE DECREASED [None]
